FAERS Safety Report 12900311 (Version 1)
Quarter: 2016Q4

REPORT INFORMATION
  Report Type: Spontaneous
  Country: CN (occurrence: CN)
  Receive Date: 20161101
  Receipt Date: 20161101
  Transmission Date: 20170207
  Serious: Yes (Other)
  Sender: FDA-Public Use
  Company Number: CN-BAYER-2016-203198

PATIENT
  Age: 67 Year
  Sex: Male

DRUGS (1)
  1. GLUCOBAY [Suspect]
     Active Substance: ACARBOSE
     Dosage: UNK

REACTIONS (4)
  - Blood glucose increased [None]
  - Product taste abnormal [None]
  - Diabetes mellitus inadequate control [None]
  - Suspected counterfeit product [None]

NARRATIVE: CASE EVENT DATE: 2016
